FAERS Safety Report 5690977-9 (Version None)
Quarter: 2008Q2

REPORT INFORMATION
  Report Type: 
  Country: None (occurrence: None)
  Receive Date: 20080401
  Receipt Date: 20080325
  Transmission Date: 20081010
  Serious: Yes (Other)
  Sender: FDA-Public Use
  Company Number: US-ELI_LILLY_AND_COMPANY-US200803005723

PATIENT
  Sex: Male

DRUGS (1)
  1. HUMULIN R [Suspect]
     Dosage: UNK, UNK
     Dates: start: 19680101

REACTIONS (6)
  - BLINDNESS UNILATERAL [None]
  - BLOOD GLUCOSE INCREASED [None]
  - DRUG INEFFECTIVE [None]
  - RENAL TRANSPLANT [None]
  - RETINAL DETACHMENT [None]
  - VISUAL ACUITY REDUCED [None]
